FAERS Safety Report 21843173 (Version 2)
Quarter: 2023Q1

REPORT INFORMATION
  Report Type: Report from Study
  Country: US (occurrence: US)
  Receive Date: 20230110
  Receipt Date: 20230324
  Transmission Date: 20230417
  Serious: Yes (Other)
  Sender: FDA-Public Use
  Company Number: US-002147023-NVSC2023US004585

PATIENT
  Age: 56 Year
  Sex: Male

DRUGS (1)
  1. COSENTYX [Suspect]
     Active Substance: SECUKINUMAB
     Indication: Psoriasis
     Dosage: 300 MG ( 150 MG/ML 2 PENS), QMO
     Route: 058
     Dates: start: 2019

REACTIONS (5)
  - Diabetes mellitus inadequate control [Unknown]
  - Essential hypertension [Unknown]
  - Nail pitting [Unknown]
  - Joint swelling [Unknown]
  - Psoriasis [Unknown]

NARRATIVE: CASE EVENT DATE: 20210519
